FAERS Safety Report 4368598-X (Version None)
Quarter: 2004Q2

REPORT INFORMATION
  Report Type: 
  Country: None (occurrence: None)
  Receive Date: 20040528
  Receipt Date: 20040415
  Transmission Date: 20050107
  Serious: Yes (Other)
  Sender: FDA-Public Use
  Company Number: 236093

PATIENT
  Age: 8 Year
  Sex: Male
  Weight: 21 kg

DRUGS (1)
  1. NORDITROPTIN SIMPLEXX (SOMATROPIN) SOLUTION FOR INJECTION, 10MG/ML [Suspect]
     Indication: NOONAN SYNDROME
     Dosage: 0.5 MB, QD, SUBCUTANEOUS
     Route: 058
     Dates: start: 20020226, end: 20040301

REACTIONS (2)
  - DYSPNOEA [None]
  - VENTRICULAR HYPERTROPHY [None]
